FAERS Safety Report 10171850 (Version 1)
Quarter: 2014Q2

REPORT INFORMATION
  Report Type: Spontaneous
  Country: US (occurrence: None)
  Receive Date: 20140428
  Receipt Date: 20140428
  Transmission Date: 20141212
  Serious: No
  Sender: FDA-Public Use
  Company Number: PHEH2013US026434

PATIENT
  Sex: Male

DRUGS (4)
  1. GILENYA (FINGOLIMOD) CAPSULE, 0.5MG [Suspect]
     Indication: MULTIPLE SCLEROSIS
     Dosage: 0.5 MG, QD, ORAL
     Route: 048
  2. FLOMAX//TAMSULOSIN HYDROCHLORIDE (TAMSULOSIN HYDROCHLORIDE) [Concomitant]
  3. LYRICA (PREGABALIN) [Concomitant]
  4. VITAMIN B12 (CYANOCOBALAMIN) [Concomitant]

REACTIONS (7)
  - Amnesia [None]
  - Tremor [None]
  - Condition aggravated [None]
  - Muscle spasms [None]
  - Muscular weakness [None]
  - Pain [None]
  - Anaemia [None]
